FAERS Safety Report 5118505-7 (Version None)
Quarter: 2006Q3

REPORT INFORMATION
  Report Type: 
  Country: None (occurrence: None)
  Receive Date: 20060927
  Receipt Date: 20060823
  Transmission Date: 20061208
  Serious: Yes (Other)
  Sender: FDA-Public Use
  Company Number: 2006SP000158

PATIENT
  Age: 48 Year
  Sex: Female

DRUGS (2)
  1. PEG-INTRON [Suspect]
     Indication: HEPATITIS C
     Dosage: SC
     Route: 058
     Dates: start: 20060728
  2. RIBAVIRIN [Suspect]
     Indication: HEPATITIS C
     Dates: start: 20060728

REACTIONS (11)
  - ABNORMAL BEHAVIOUR [None]
  - AMNESIA [None]
  - CONFUSIONAL STATE [None]
  - CONVERSION DISORDER [None]
  - DRUG INEFFECTIVE [None]
  - FATIGUE [None]
  - HALLUCINATION [None]
  - INJECTION SITE REACTION [None]
  - INSOMNIA [None]
  - ORAL INTAKE REDUCED [None]
  - WEIGHT DECREASED [None]
